FAERS Safety Report 9011567 (Version 1)
Quarter: 2013Q1

REPORT INFORMATION
  Report Type: Spontaneous
  Country: TR (occurrence: TR)
  Receive Date: 20130108
  Receipt Date: 20130108
  Transmission Date: 20140127
  Serious: Yes (Death)
  Sender: FDA-Public Use
  Company Number: TR-ELI_LILLY_AND_COMPANY-TR201301000797

PATIENT
  Age: 0 Year
  Sex: 0

DRUGS (3)
  1. HUMAN INSULIN [Suspect]
     Dosage: 20 U, QD
     Route: 064
     Dates: start: 20111021
  2. HUMULIN REGULAR [Suspect]
     Dosage: 20 U, QD
     Route: 064
  3. HUMULIN 30% REGULAR, 70% NPH [Suspect]
     Dosage: 50 U, BID
     Route: 064

REACTIONS (6)
  - Death [Fatal]
  - Large for dates baby [Unknown]
  - Premature baby [Unknown]
  - Foetal exposure during pregnancy [Recovered/Resolved]
  - Drug dispensing error [Recovered/Resolved]
  - Maternal drugs affecting foetus [None]
